FAERS Safety Report 8812546 (Version 2)
Quarter: 2013Q3

REPORT INFORMATION
  Report Type: Report from Study
  Country: CA (occurrence: CA)
  Receive Date: 20120927
  Receipt Date: 20130726
  Transmission Date: 20140515
  Serious: Yes (Hospitalization, Other)
  Sender: FDA-Public Use
  Company Number: CA-JNJFOC-20120910357

PATIENT
  Age: 57 Year
  Sex: Female

DRUGS (1)
  1. SIMPONI [Suspect]
     Indication: ANKYLOSING SPONDYLITIS
     Dosage: STOPPED SINCE NEARLY ONE YEAR BACK FROM THE TIME OF THE REPORT
     Route: 058
     Dates: start: 20110801

REACTIONS (1)
  - Lymphatic system neoplasm [Unknown]
